FAERS Safety Report 4904582-2 (Version None)
Quarter: 2006Q1

REPORT INFORMATION
  Report Type: 
  Country: None (occurrence: None)
  Receive Date: 20060208
  Receipt Date: 20050919
  Transmission Date: 20060701
  Serious: No
  Sender: FDA-Public Use
  Company Number: US-GLAXOSMITHKLINE-A0574811A

PATIENT
  Age: 45 Year
  Sex: Male

DRUGS (3)
  1. PAROXETINE HCL [Suspect]
     Route: 048
     Dates: start: 20040101
  2. NORVASC [Concomitant]
  3. DARVOCET [Concomitant]

REACTIONS (3)
  - ANXIETY [None]
  - DRUG INEFFECTIVE [None]
  - DYSPNOEA [None]
